FAERS Safety Report 11754286 (Version 1)
Quarter: 2015Q4

REPORT INFORMATION
  Report Type: Spontaneous
  Country: US (occurrence: None)
  Receive Date: 20151118
  Receipt Date: 20151118
  Transmission Date: 20160304
  Serious: Yes (Hospitalization)
  Sender: FDA-Public Use
  Company Number: 2015000051

PATIENT
  Age: 38 Year
  Sex: Female

DRUGS (7)
  1. CLONAZEPAM. [Concomitant]
     Active Substance: CLONAZEPAM
  2. VENLAFAXINE [Concomitant]
     Active Substance: VENLAFAXINE HYDROCHLORIDE
  3. TRAZODONE [Suspect]
     Active Substance: TRAZODONE HYDROCHLORIDE
     Indication: DEPRESSION
  4. LEVOTHYROXINE. [Suspect]
     Active Substance: LEVOTHYROXINE
  5. CHEMOTHERAPEUTICS [Concomitant]
     Active Substance: UNSPECIFIED INGREDIENT
  6. METHYLPHENIDATE. [Concomitant]
     Active Substance: METHYLPHENIDATE
  7. MIRTAZAPINE. [Concomitant]
     Active Substance: MIRTAZAPINE

REACTIONS (13)
  - Drug ineffective [None]
  - Pericardial effusion [None]
  - Depression [None]
  - Condition aggravated [None]
  - Malnutrition [None]
  - Activities of daily living impaired [None]
  - Hypersomnia [None]
  - Respiratory failure [None]
  - Malabsorption [None]
  - Hypothyroidism [None]
  - Decreased appetite [None]
  - Renal failure [None]
  - Clostridium difficile colitis [None]
